FAERS Safety Report 8795787 (Version 3)
Quarter: 2012Q4

REPORT INFORMATION
  Report Type: 
  Country: US (occurrence: US)
  Receive Date: 20120919
  Receipt Date: 20121015
  Transmission Date: 20130627
  Serious: Yes (Hospitalization)
  Sender: FDA-Public Use
  Company Number: US-ASTRAZENECA-2012SE70220

PATIENT
  Age: 2 Year
  Sex: Male

DRUGS (3)
  1. PULMICORT [Suspect]
     Route: 055
  2. PULMICORT [Suspect]
     Route: 055
  3. SINGULAIR [Concomitant]
     Indication: ASTHMA

REACTIONS (4)
  - Malaise [Unknown]
  - Bronchitis [Unknown]
  - Asthma [Unknown]
  - Drug dose omission [Unknown]
